FAERS Safety Report 8460600-9 (Version None)
Quarter: 2012Q2

REPORT INFORMATION
  Report Type: 
  Country: None (occurrence: None)
  Receive Date: 20120622
  Receipt Date: 20120615
  Transmission Date: 20120825
  Serious: Yes (Hospitalization)
  Sender: FDA-Public Use
  Company Number: US-ASTRAZENECA-2012SE40765

PATIENT
  Age: 62 Year
  Sex: Female

DRUGS (2)
  1. NEXIUM [Suspect]
     Route: 048
  2. PROTONIX [Concomitant]

REACTIONS (6)
  - MALAISE [None]
  - FEELING ABNORMAL [None]
  - DYSPEPSIA [None]
  - DRUG DOSE OMISSION [None]
  - DYSPHAGIA [None]
  - PNEUMONIA [None]
